FAERS Safety Report 6238446-1 (Version None)
Quarter: 2009Q2

REPORT INFORMATION
  Report Type: 
  Country: None (occurrence: None)
  Receive Date: 20090622
  Receipt Date: 20090610
  Transmission Date: 20091009
  Serious: No
  Sender: FDA-Public Use
  Company Number: US-BAYER-200919345NA

PATIENT
  Age: 47 Year
  Sex: Male
  Weight: 145 kg

DRUGS (1)
  1. MAGNEVIST [Suspect]
     Indication: NUCLEAR MAGNETIC RESONANCE IMAGING BRAIN
     Dosage: TOTAL DAILY DOSE: 21 ML
     Route: 042
     Dates: start: 20090427, end: 20090427

REACTIONS (3)
  - EYE IRRITATION [None]
  - NASAL DISCOMFORT [None]
  - SNEEZING [None]
